FAERS Safety Report 9209768 (Version 1)
Quarter: 2013Q1

REPORT INFORMATION
  Report Type: Spontaneous
  Country: US (occurrence: None)
  Receive Date: 20120820
  Receipt Date: 20120820
  Transmission Date: 20140127
  Serious: No
  Sender: FDA-Public Use
  Company Number: 1000030599

PATIENT
  Age: 66 Year
  Sex: Female

DRUGS (4)
  1. VIIBRYD [Suspect]
     Indication: DEPRESSION
     Dates: start: 20120514, end: 20120514
  2. VIIBRYD [Suspect]
     Indication: DEPRESSION
     Route: 048
     Dates: start: 20120523, end: 20120528
  3. TRAZODONE(TRAZODONE)(TRAZODONE) [Concomitant]
  4. TEMAZEPAM(TEMAZEPAM(TEMAZEPAM) [Concomitant]

REACTIONS (6)
  - Tremor [None]
  - Diarrhoea [None]
  - Nausea [None]
  - Anxiety [None]
  - Depression [None]
  - Panic attack [None]
